FAERS Safety Report 11288880 (Version 2)
Quarter: 2015Q3

REPORT INFORMATION
  Report Type: Spontaneous
  Country: US (occurrence: US)
  Receive Date: 20150721
  Receipt Date: 20150909
  Transmission Date: 20151125
  Serious: No
  Sender: FDA-Public Use
  Company Number: US-BRISTOL-MYERS SQUIBB COMPANY-BMS-2015-048098

PATIENT
  Age: 9 Year
  Sex: Female

DRUGS (6)
  1. ABILIFY [Suspect]
     Active Substance: ARIPIPRAZOLE
     Indication: ANGER
     Dosage: 5 MG, QD; ORAL SOLUTION 1MG/ML
     Route: 065
     Dates: start: 201506
  2. ABILIFY [Suspect]
     Active Substance: ARIPIPRAZOLE
     Indication: AUTISM
  3. TOPAMAX [Concomitant]
     Active Substance: TOPIRAMATE
     Indication: PRODUCT USED FOR UNKNOWN INDICATION
     Route: 065
  4. TRAZODONE [Concomitant]
     Active Substance: TRAZODONE HYDROCHLORIDE
     Indication: SLEEP DISORDER
     Route: 065
  5. ABILIFY [Suspect]
     Active Substance: ARIPIPRAZOLE
     Indication: ANXIETY
  6. SERTRALINE [Concomitant]
     Active Substance: SERTRALINE HYDROCHLORIDE
     Indication: PRODUCT USED FOR UNKNOWN INDICATION
     Route: 065

REACTIONS (1)
  - Drug ineffective [Not Recovered/Not Resolved]

NARRATIVE: CASE EVENT DATE: 201506
